FAERS Safety Report 5834678-2 (Version None)
Quarter: 2008Q3

REPORT INFORMATION
  Report Type: 
  Country: None (occurrence: None)
  Receive Date: 20080805
  Receipt Date: 20080725
  Transmission Date: 20090109
  Serious: Yes (Hospitalization)
  Sender: FDA-Public Use
  Company Number: CH-MERCK-0807CHE00027

PATIENT
  Age: 62 Year
  Sex: Male

DRUGS (5)
  1. ZOCOR [Suspect]
     Route: 048
  2. CLARITHROMYCIN [Suspect]
     Indication: RHODOCOCCUS INFECTION
     Route: 048
  3. CIPROFLOXACIN [Interacting]
     Indication: RHODOCOCCUS INFECTION
     Route: 048
  4. CYCLOSPORINE [Suspect]
     Indication: RENAL TRANSPLANT
     Route: 065
  5. MYCOPHENOLATE SODIUM [Concomitant]
     Indication: RENAL TRANSPLANT
     Route: 048

REACTIONS (2)
  - DRUG INTERACTION [None]
  - MYOPATHY [None]
